FAERS Safety Report 20731657 (Version 1)
Quarter: 2022Q2

REPORT INFORMATION
  Report Type: Spontaneous
  Country: US (occurrence: US)
  Receive Date: 20220420
  Receipt Date: 20220420
  Transmission Date: 20220721
  Serious: No
  Sender: FDA-Public Use
  Company Number: US-SA-SAC20220418000692

PATIENT
  Sex: Female

DRUGS (10)
  1. KEVZARA [Suspect]
     Active Substance: SARILUMAB
     Indication: Psoriasis
     Dosage: 200 MG, QOW
     Route: 065
  2. FISH OIL [Concomitant]
     Active Substance: FISH OIL
     Dosage: 1200 MG
  3. IRON [Concomitant]
     Active Substance: IRON
     Dosage: 28 MG
  4. VITAMIN B12 [Concomitant]
     Active Substance: CYANOCOBALAMIN
     Dosage: 100 UG
  5. CELEBREX [Concomitant]
     Active Substance: CELECOXIB
     Dosage: 400 MG
  6. ORENCIA [Concomitant]
     Active Substance: ABATACEPT
  7. CYCLOBENZAPRINUM [Concomitant]
     Dosage: 10 MG
  8. CHOLECALCIFEROL [Concomitant]
     Active Substance: CHOLECALCIFEROL
     Dosage: 100 UG/ML
  9. VITAMIN E [Concomitant]
     Active Substance: .ALPHA.-TOCOPHEROL
     Dosage: 24000 IU
  10. MAGNESIUM [Concomitant]
     Active Substance: MAGNESIUM
     Dosage: 200 MG

REACTIONS (2)
  - Psoriasis [Not Recovered/Not Resolved]
  - Product use in unapproved indication [Unknown]
